FAERS Safety Report 24964875 (Version 1)
Quarter: 2025Q1

REPORT INFORMATION
  Report Type: Spontaneous
  Country: GB (occurrence: GB)
  Receive Date: 20250213
  Receipt Date: 20250213
  Transmission Date: 20250409
  Serious: Yes (Other)
  Sender: ACCORD
  Company Number: GB-Accord-469147

PATIENT
  Age: 60 Year
  Sex: Male

DRUGS (2)
  1. ATORVASTATIN [Suspect]
     Active Substance: ATORVASTATIN
     Indication: Hypercholesterolaemia
  2. VALSARTAN [Concomitant]
     Active Substance: VALSARTAN
     Indication: Essential hypertension

REACTIONS (2)
  - Hallucination, auditory [Recovered/Resolved]
  - Headache [Recovered/Resolved]
